FAERS Safety Report 26130300 (Version 1)
Quarter: 2025Q4

REPORT INFORMATION
  Report Type: Spontaneous
  Country: US (occurrence: None)
  Receive Date: 20251205
  Receipt Date: 20251205
  Transmission Date: 20260118
  Serious: Yes (Other)
  Sender: FDA-CTU
  Company Number: None

PATIENT
  Age: 45 Year

DRUGS (2)
  1. BUPRENORPHINE\NALOXONE [Suspect]
     Active Substance: BUPRENORPHINE\NALOXONE
     Indication: Drug dependence
     Dates: start: 20231031, end: 20250217
  2. SUBLOCADE [Suspect]
     Active Substance: BUPRENORPHINE
     Indication: Drug dependence
     Dates: start: 20230726, end: 20240610

REACTIONS (4)
  - Nausea [None]
  - Migraine [None]
  - Injection site pain [None]
  - Anxiety [None]

NARRATIVE: CASE EVENT DATE: 20240722
